FAERS Safety Report 11804703 (Version 1)
Quarter: 2015Q4

REPORT INFORMATION
  Report Type: Spontaneous
  Country: US (occurrence: US)
  Receive Date: 20151205
  Receipt Date: 20151205
  Transmission Date: 20160305
  Serious: No
  Sender: FDA-Public Use
  Company Number: US-B.I. PHARMACEUTICALS,INC./RIDGEFIELD-2015-BI-65813BP

PATIENT
  Age: 70 Year
  Sex: Male
  Weight: 102 kg

DRUGS (4)
  1. JARDIANCE [Suspect]
     Active Substance: EMPAGLIFLOZIN
     Indication: DIABETES MELLITUS
     Dosage: 10 MG
     Route: 048
     Dates: start: 20151011, end: 20151111
  2. JARDIANCE [Suspect]
     Active Substance: EMPAGLIFLOZIN
     Dosage: 25 MG
     Route: 048
     Dates: start: 20151112
  3. JANUMET [Concomitant]
     Active Substance: METFORMIN HYDROCHLORIDE\SITAGLIPTIN PHOSPHATE
     Indication: DIABETES MELLITUS
     Dosage: DOSE PER APPLICATION: 50/1000
     Route: 048
     Dates: start: 2000
  4. ASACOL [Concomitant]
     Active Substance: MESALAMINE
     Indication: COLITIS ULCERATIVE
     Dosage: 1600 MG
     Route: 048
     Dates: start: 1990

REACTIONS (1)
  - Neuralgia [Not Recovered/Not Resolved]

NARRATIVE: CASE EVENT DATE: 20151112
